FAERS Safety Report 9215047 (Version 1)
Quarter: 2013Q2

REPORT INFORMATION
  Report Type: Spontaneous
  Country: US (occurrence: US)
  Receive Date: 20130405
  Receipt Date: 20130405
  Transmission Date: 20140414
  Serious: Yes (Hospitalization)
  Sender: FDA-Public Use
  Company Number: US-BAYER-2013-040487

PATIENT
  Age: 43 Year
  Sex: Female

DRUGS (16)
  1. YAZ [Suspect]
  2. TOPAMAX [Concomitant]
     Dosage: 50 MG, 1 TAB 2 TIMES A DAY
     Dates: start: 20071108
  3. ULTRAM [Concomitant]
     Dosage: 50 MG, BID, 1 TAB PRN
     Dates: start: 20071109
  4. GABITRIL [Concomitant]
     Dosage: 4 MG, 1 TAB ONCE A DAY
     Dates: start: 20071109
  5. ALLEGRA [Concomitant]
     Dosage: 180 MG, UNK
     Dates: start: 20071109
  6. FACET INJECTIONS [Concomitant]
     Indication: PAIN IN EXTREMITY
     Dosage: UNK
     Dates: start: 20071130
  7. PHENERGAN [Concomitant]
     Dosage: 12.5 MG, ONE EVERY 4-6 HOURS AS NEEDE
     Route: 048
     Dates: start: 20071203
  8. MOBIC [Concomitant]
     Dosage: 7.5 MG, 1 TAB ONCE A DAY
     Dates: start: 20071203
  9. LORTAB [Concomitant]
     Indication: BACK PAIN
     Dosage: UNK
     Dates: start: 20071207
  10. STEROID ANTIBACTERIALS [Concomitant]
     Indication: BACK PAIN
     Dosage: UNK
     Route: 008
     Dates: start: 20071213
  11. ALBUTEROL [Concomitant]
  12. ATROVENT [Concomitant]
  13. MORPHINE [Concomitant]
  14. ZOFRAN [Concomitant]
     Route: 042
  15. ASPIRIN BP [Concomitant]
  16. IV SEDATION [Concomitant]
     Dosage: UNK
     Dates: start: 20071213

REACTIONS (2)
  - Pulmonary embolism [None]
  - Deep vein thrombosis [None]
